FAERS Safety Report 18040310 (Version 1)
Quarter: 2020Q3

REPORT INFORMATION
  Report Type: Spontaneous
  Country: US (occurrence: US)
  Receive Date: 20200717
  Receipt Date: 20200717
  Transmission Date: 20201103
  Serious: Yes (Other)
  Sender: FDA-Public Use
  Company Number: US-BAUSCH-BL-2020-019865

PATIENT
  Age: 65 Year
  Sex: Female

DRUGS (2)
  1. MURO 128 [Suspect]
     Active Substance: SODIUM CHLORIDE
     Indication: CORNEAL DYSTROPHY
     Dosage: 1/8 OF OINTMENT FOR EACH EYE AT BEDTIME, STOPPED DRUG FOR 1 WEEK
     Route: 047
     Dates: start: 2020, end: 2020
  2. MURO 128 [Suspect]
     Active Substance: SODIUM CHLORIDE
     Indication: PRODUCT USE IN UNAPPROVED INDICATION
     Route: 047
     Dates: start: 20200707

REACTIONS (5)
  - Hordeolum [Recovered/Resolved]
  - Product use in unapproved indication [Unknown]
  - Eye infection bacterial [Recovered/Resolved]
  - Eye irritation [Not Recovered/Not Resolved]
  - Eye pain [Not Recovered/Not Resolved]

NARRATIVE: CASE EVENT DATE: 2020
